FAERS Safety Report 8991248 (Version 1)
Quarter: 2012Q4

REPORT INFORMATION
  Report Type: Report from Study
  Country: CA (occurrence: IN)
  Receive Date: 20121231
  Receipt Date: 20121231
  Transmission Date: 20130627
  Serious: Yes (Other)
  Sender: FDA-Public Use
  Company Number: CA-ROCHE-1173009

PATIENT
  Age: 50 Year
  Sex: Female
  Weight: 61.06 kg

DRUGS (5)
  1. OMALIZUMAB [Suspect]
     Indication: ASTHMA
     Dosage: 150 mg, Q4W
     Route: 058
     Dates: start: 20070118
  2. OMALIZUMAB [Suspect]
     Route: 058
     Dates: start: 20090819
  3. OMALIZUMAB [Suspect]
     Route: 058
     Dates: start: 20090918
  4. OMALIZUMAB [Suspect]
     Route: 058
     Dates: start: 20091016
  5. OMALIZUMAB [Suspect]
     Route: 058

REACTIONS (6)
  - Anxiety [Not Recovered/Not Resolved]
  - Asthma [Not Recovered/Not Resolved]
  - Pharyngitis [Unknown]
  - Drug ineffective [Unknown]
  - Dysphonia [Unknown]
  - Heart rate decreased [Unknown]
